FAERS Safety Report 25051464 (Version 2)
Quarter: 2025Q1

REPORT INFORMATION
  Report Type: Spontaneous
  Country: US (occurrence: US)
  Receive Date: 20250307
  Receipt Date: 20250307
  Transmission Date: 20250409
  Serious: No
  Sender: NOVARTIS
  Company Number: US-002147023-NVSC2025US037066

PATIENT
  Age: 73 Year
  Sex: Female

DRUGS (1)
  1. COSENTYX [Suspect]
     Active Substance: SECUKINUMAB
     Indication: Psoriasis
     Dosage: UNK, Q4W (300MG/ 2ML)
     Route: 058

REACTIONS (3)
  - Product administration error [Unknown]
  - Device leakage [Unknown]
  - Wound [Unknown]

NARRATIVE: CASE EVENT DATE: 20250303
